FAERS Safety Report 5725273-4 (Version None)
Quarter: 2008Q2

REPORT INFORMATION
  Report Type: 
  Country: None (occurrence: None)
  Receive Date: 20080501
  Receipt Date: 20080424
  Transmission Date: 20081010
  Serious: No
  Sender: FDA-Public Use
  Company Number: US-BAXTER-2008BH004307

PATIENT
  Sex: Female

DRUGS (3)
  1. HEPARIN SODIUM [Suspect]
     Indication: CYSTITIS INTERSTITIAL
     Dosage: DOSE UNIT:UNKNOWN
     Route: 065
  2. BICARBONATE [Concomitant]
     Indication: CYSTITIS INTERSTITIAL
     Route: 043
  3. LIDOCAINE [Concomitant]
     Indication: CYSTITIS INTERSTITIAL
     Route: 043

REACTIONS (2)
  - VAGINAL PAIN [None]
  - VULVOVAGINAL BURNING SENSATION [None]
